FAERS Safety Report 17361014 (Version 1)
Quarter: 2020Q1

REPORT INFORMATION
  Report Type: Spontaneous
  Country: US (occurrence: US)
  Receive Date: 20200203
  Receipt Date: 20200203
  Transmission Date: 20200409
  Serious: No
  Sender: FDA-Public Use
  Company Number: US-VIIV HEALTHCARE LIMITED-US2020AMR015908

PATIENT
  Age: 57 Year
  Sex: Male

DRUGS (1)
  1. TRIUMEQ [Suspect]
     Active Substance: ABACAVIR SULFATE\DOLUTEGRAVIR SODIUM\LAMIVUDINE
     Indication: ACQUIRED IMMUNODEFICIENCY SYNDROME
     Dosage: 1 DF, 1D
     Route: 065
     Dates: start: 201811

REACTIONS (4)
  - Gene mutation [Unknown]
  - Glomerular filtration rate abnormal [Unknown]
  - CD4 lymphocytes abnormal [Unknown]
  - Viral load abnormal [Unknown]
